FAERS Safety Report 18284692 (Version 1)
Quarter: 2020Q3

REPORT INFORMATION
  Report Type: Spontaneous
  Country: US (occurrence: US)
  Receive Date: 20200918
  Receipt Date: 20200918
  Transmission Date: 20201103
  Serious: No
  Sender: FDA-Public Use
  Company Number: US-PFIZER INC-2019118163

PATIENT
  Age: 52 Year
  Sex: Female

DRUGS (1)
  1. IBRANCE [Suspect]
     Active Substance: PALBOCICLIB
     Indication: BREAST CANCER FEMALE
     Dosage: 125 MG, CYCLIC (DAILY ON DAYS 1 TO 21 OF A 28?DAY CYCLE)
     Route: 048
     Dates: start: 201806

REACTIONS (6)
  - Constipation [Unknown]
  - Product dose omission issue [Unknown]
  - Functional gastrointestinal disorder [Unknown]
  - Diarrhoea [Unknown]
  - Arthritis [Unknown]
  - Fatigue [Unknown]
